FAERS Safety Report 7600417-8 (Version None)
Quarter: 2011Q3

REPORT INFORMATION
  Report Type: 
  Country: None (occurrence: None)
  Receive Date: 20110711
  Receipt Date: 20110704
  Transmission Date: 20111222
  Serious: Yes (Other)
  Sender: FDA-Public Use
  Company Number: PHHY2010CN60042

PATIENT
  Age: 31 Year
  Sex: Female

DRUGS (1)
  1. SEBIVO [Suspect]
     Dosage: 1 DF, QD
     Route: 048
     Dates: start: 20100801

REACTIONS (3)
  - FOETAL MALPOSITION [None]
  - MATERNAL EXPOSURE DURING PREGNANCY [None]
  - NORMAL NEWBORN [None]
